FAERS Safety Report 6612509-0 (Version None)
Quarter: 2010Q1

REPORT INFORMATION
  Report Type: 
  Country: None (occurrence: None)
  Receive Date: 20100223
  Receipt Date: 20100201
  Transmission Date: 20100710
  Serious: Yes (Life-Threatening, Hospitalization, Other)
  Sender: FDA-Public Use
  Company Number: AUR-APL-2010-00449

PATIENT
  Age: 73 Year
  Sex: Female

DRUGS (3)
  1. SIMVASTATIN [Suspect]
     Indication: HYPERCHOLESTEROLAEMIA
     Dosage: 80 MG, DAILY
     Dates: start: 20091123, end: 20100123
  2. DOXYCYCLINE HYCLATE CAPSULE, HARD [Suspect]
     Indication: LOWER RESPIRATORY TRACT INFECTION
     Dosage: 100MG, ORAL
     Route: 048
     Dates: start: 20100105, end: 20100119
  3. PSEUDOEPHEDRINE [Suspect]
     Indication: NASAL DECONGESTION THERAPY
     Dosage: 60MG-TID-ORAL
     Route: 048
     Dates: start: 20100105, end: 20100112

REACTIONS (10)
  - ALANINE AMINOTRANSFERASE INCREASED [None]
  - ASPARTATE AMINOTRANSFERASE INCREASED [None]
  - BLOOD BILIRUBIN INCREASED [None]
  - BLOOD CREATININE INCREASED [None]
  - BLOOD GLUCOSE INCREASED [None]
  - BLOOD UREA INCREASED [None]
  - HAEMOGLOBIN DECREASED [None]
  - HYPERCHOLESTEROLAEMIA [None]
  - RENAL IMPAIRMENT [None]
  - WHITE BLOOD CELL COUNT INCREASED [None]
